FAERS Safety Report 5809139-7 (Version None)
Quarter: 2008Q3

REPORT INFORMATION
  Report Type: 
  Country: None (occurrence: None)
  Receive Date: 20080714
  Receipt Date: 20080702
  Transmission Date: 20090109
  Serious: Yes (Hospitalization, Other)
  Sender: FDA-Public Use
  Company Number: US-PFIZER INC-2008026076

PATIENT
  Sex: Female
  Weight: 90 kg

DRUGS (5)
  1. LYRICA [Suspect]
     Indication: FIBROMYALGIA
     Dates: start: 20080301, end: 20080317
  2. ACTOS [Concomitant]
  3. PLAVIX [Concomitant]
  4. COREG [Concomitant]
  5. LASIX [Concomitant]

REACTIONS (9)
  - CHEST PAIN [None]
  - HEART RATE INCREASED [None]
  - HYPERSENSITIVITY [None]
  - LIP BLISTER [None]
  - OEDEMA MOUTH [None]
  - OEDEMA PERIPHERAL [None]
  - PALPITATIONS [None]
  - SWELLING FACE [None]
  - WEIGHT INCREASED [None]
